FAERS Safety Report 12938335 (Version 1)
Quarter: 2016Q4

REPORT INFORMATION
  Report Type: Spontaneous
  Country: US (occurrence: US)
  Receive Date: 20161114
  Receipt Date: 20161114
  Transmission Date: 20170207
  Serious: Yes (Other)
  Sender: FDA-Public Use
  Company Number: None

PATIENT
  Age: 81 Year
  Sex: Male
  Weight: 81.65 kg

DRUGS (2)
  1. UREA CREAM, 40% [Suspect]
     Active Substance: UREA
     Indication: HYPERKERATOSIS
     Dosage: UREA CREAM, 40% - QTY SUFFICIENT TO COVER FEET - BID - TOPICAL
     Route: 061
     Dates: start: 20161103, end: 20161107
  2. UNSPECIFIED MEDICATION FOR BLOOD PRESSURE AND ATRIAL FIBRILLATION [Concomitant]
     Active Substance: UNSPECIFIED INGREDIENT

REACTIONS (3)
  - Application site pain [None]
  - Application site pruritus [None]
  - Application site hypoaesthesia [None]

NARRATIVE: CASE EVENT DATE: 20161106
